FAERS Safety Report 4752958-9 (Version None)
Quarter: 2005Q3

REPORT INFORMATION
  Report Type: 
  Country: None (occurrence: None)
  Receive Date: 20050825
  Receipt Date: 20050811
  Transmission Date: 20060218
  Serious: Yes (Other)
  Sender: FDA-Public Use
  Company Number: S05-USA-03755-01

PATIENT
  Age: 43 Year
  Sex: Male

DRUGS (5)
  1. CELEXA [Suspect]
     Indication: BIPOLAR DISORDER
     Dosage: 20 MG QD PO
     Route: 048
     Dates: start: 20020401, end: 20030901
  2. CELEBREX [Concomitant]
  3. STELAZINE [Concomitant]
  4. PREVACID [Concomitant]
  5. XANAX [Concomitant]

REACTIONS (4)
  - BIPOLAR DISORDER [None]
  - CONDITION AGGRAVATED [None]
  - CONSTIPATION [None]
  - FIBROMYALGIA [None]
